FAERS Safety Report 14279675 (Version 4)
Quarter: 2018Q1

REPORT INFORMATION
  Report Type: Report from Study
  Country: AT (occurrence: AT)
  Receive Date: 20171212
  Receipt Date: 20180313
  Transmission Date: 20180508
  Serious: Yes (Other)
  Sender: FDA-Public Use
  Company Number: AT-ELI_LILLY_AND_COMPANY-AT201712001712

PATIENT
  Age: 44 Year
  Sex: Female
  Weight: 48 kg

DRUGS (25)
  1. NOVALGIN                           /00169801/ [Concomitant]
     Active Substance: ACETAMINOPHEN\CAFFEINE\PROPYPHENAZONE
     Indication: PRODUCT USED FOR UNKNOWN INDICATION
     Dosage: 756-500 MG, UNKNOWN
     Route: 065
  2. GEMCITABINE HYDROCHLORIDE. [Suspect]
     Active Substance: GEMCITABINE HYDROCHLORIDE
     Dosage: 1494 MG/M2, UNKNOWN
     Route: 065
     Dates: start: 20170323
  3. GEMCITABINE HYDROCHLORIDE. [Suspect]
     Active Substance: GEMCITABINE HYDROCHLORIDE
     Dosage: 1226 MG/M2, UNKNOWN
     Route: 065
     Dates: start: 20170523
  4. LOVENOX [Concomitant]
     Active Substance: ENOXAPARIN SODIUM
     Dosage: 60 MG, UNKNOWN
     Route: 065
  5. ABRAXANE [Suspect]
     Active Substance: PACLITAXEL
     Dosage: 151 MG/M2, UNKNOWN
     Route: 041
     Dates: start: 20170523
  6. ABRAXANE [Suspect]
     Active Substance: PACLITAXEL
     Dosage: 97 MG/M2, UNK
     Route: 041
     Dates: start: 20170523
  7. PANTOLOC                           /01263201/ [Concomitant]
     Active Substance: PANTOPRAZOLE SODIUM
     Indication: PRODUCT USED FOR UNKNOWN INDICATION
     Dosage: 40 MG, DAILY
     Route: 065
  8. TRITTICO [Concomitant]
     Active Substance: TRAZODONE HYDROCHLORIDE
     Indication: PRODUCT USED FOR UNKNOWN INDICATION
     Dosage: 150 MG, DAILY
     Route: 065
  9. ABRAXANE [Suspect]
     Active Substance: PACLITAXEL
     Indication: PANCREATIC CARCINOMA
     Dosage: 151 MG/M2, UNKNOWN
     Route: 041
     Dates: start: 20170620
  10. XANAX [Concomitant]
     Active Substance: ALPRAZOLAM
     Indication: PRODUCT USED FOR UNKNOWN INDICATION
     Dosage: .5 MG, UNK
     Route: 065
  11. CONCOR [Concomitant]
     Active Substance: BISOPROLOL FUMARATE
     Indication: PRODUCT USED FOR UNKNOWN INDICATION
     Dosage: 5 MG, UNKNOWN
     Route: 065
  12. GEMCITABINE HYDROCHLORIDE. [Suspect]
     Active Substance: GEMCITABINE HYDROCHLORIDE
     Dosage: 1536 MG/M2, UNKNOWN
     Route: 065
     Dates: start: 20170420
  13. GEMCITABINE HYDROCHLORIDE. [Suspect]
     Active Substance: GEMCITABINE HYDROCHLORIDE
     Dosage: 1199 MG/M2, UNKNOWN
     Route: 065
     Dates: start: 20170523
  14. NEON [Concomitant]
     Indication: PRODUCT USED FOR UNKNOWN INDICATION
     Dosage: UNK, UNKNOWN
     Route: 065
  15. ZOFRAN [Concomitant]
     Active Substance: ONDANSETRON HYDROCHLORIDE
     Indication: PRODUCT USED FOR UNKNOWN INDICATION
     Route: 065
  16. GEMCITABINE HYDROCHLORIDE. [Suspect]
     Active Substance: GEMCITABINE HYDROCHLORIDE
     Dosage: 1176 MG/M2, UNKNOWN
     Route: 065
     Dates: start: 20170620
  17. GEMCITABINE HYDROCHLORIDE. [Suspect]
     Active Substance: GEMCITABINE HYDROCHLORIDE
     Dosage: 1211 MG/M2, UNKNOWN
     Route: 065
     Dates: start: 20170523
  18. GEMCITABINE HYDROCHLORIDE. [Suspect]
     Active Substance: GEMCITABINE HYDROCHLORIDE
     Dosage: 1233 MG/M2, UNKNOWN
     Route: 065
     Dates: start: 20170620
  19. ABRAXANE [Suspect]
     Active Substance: PACLITAXEL
     Dosage: 189 MG/M2, UNKNOWN
     Route: 041
     Dates: start: 20170420
  20. MOVICOL [Suspect]
     Active Substance: POLYETHYLENE GLYCOL 3350\POTASSIUM CHLORIDE\SODIUM BICARBONATE\SODIUM CHLORIDE
     Indication: PRODUCT USED FOR UNKNOWN INDICATION
     Dosage: UNK UNK, UNKNOWN
     Route: 065
  21. GEMCITABINE HYDROCHLORIDE. [Suspect]
     Active Substance: GEMCITABINE HYDROCHLORIDE
     Indication: PANCREATIC CARCINOMA
     Dosage: 1511 MG/M2, UNKNOWN
     Route: 065
     Dates: start: 20170323
  22. GEMCITABINE HYDROCHLORIDE. [Suspect]
     Active Substance: GEMCITABINE HYDROCHLORIDE
     Dosage: 1491 MG/M2, UNKNOWN
     Route: 065
     Dates: start: 20170420
  23. ABRAXANE [Suspect]
     Active Substance: PACLITAXEL
     Dosage: 191 MG/M2, UNKNOWN
     Route: 041
     Dates: start: 20170323
  24. ABRAXANE [Suspect]
     Active Substance: PACLITAXEL
     Dosage: 189 MG/M2, UNKNOWN
     Route: 041
     Dates: start: 20170323
  25. LOVENOX [Concomitant]
     Active Substance: ENOXAPARIN SODIUM
     Indication: PRODUCT USED FOR UNKNOWN INDICATION
     Dosage: 80 MG, UNKNOWN
     Route: 065
     Dates: start: 20170420, end: 20170508

REACTIONS (5)
  - Malignant neoplasm progression [Unknown]
  - Polyneuropathy [Recovered/Resolved]
  - Liver function test increased [Recovered/Resolved]
  - Diarrhoea [Recovered/Resolved]
  - Thrombocytopenia [Recovered/Resolved]

NARRATIVE: CASE EVENT DATE: 20170330
